FAERS Safety Report 15637227 (Version 1)
Quarter: 2018Q4

REPORT INFORMATION
  Report Type: Spontaneous
  Country: US (occurrence: US)
  Receive Date: 20181120
  Receipt Date: 20181120
  Transmission Date: 20190205
  Serious: No
  Sender: FDA-Public Use
  Company Number: US-JNJFOC-20180431543

PATIENT
  Sex: Female
  Weight: 56.69 kg

DRUGS (3)
  1. FOSINOPRIL [Concomitant]
     Active Substance: FOSINOPRIL
  2. CALCIUM CHLORIDE. [Concomitant]
     Active Substance: CALCIUM CHLORIDE
  3. IMBRUVICA [Suspect]
     Active Substance: IBRUTINIB
     Indication: CHRONIC LYMPHOCYTIC LEUKAEMIA
     Route: 048

REACTIONS (1)
  - Peripheral swelling [Unknown]
